FAERS Safety Report 12468748 (Version 4)
Quarter: 2016Q3

REPORT INFORMATION
  Report Type: Report from Study
  Country: US (occurrence: US)
  Receive Date: 20160615
  Receipt Date: 20160720
  Transmission Date: 20161109
  Serious: Yes (Hospitalization, Other)
  Sender: FDA-Public Use
  Company Number: US-GILEAD-2016-0218470

PATIENT
  Age: 75 Year
  Sex: Female
  Weight: 81.7 kg

DRUGS (23)
  1. FLUCONAZOLE. [Concomitant]
     Active Substance: FLUCONAZOLE
  2. LACTOBACILLUS ACIDOPHILUS [Concomitant]
     Active Substance: LACTOBACILLUS ACIDOPHILUS
  3. LORAZEPAM. [Concomitant]
     Active Substance: LORAZEPAM
  4. ACETAMINOPHEN. [Concomitant]
     Active Substance: ACETAMINOPHEN
  5. PANTOPRAZOLE [Concomitant]
     Active Substance: PANTOPRAZOLE SODIUM
  6. ADCIRCA [Concomitant]
     Active Substance: TADALAFIL
  7. COUMADIN [Concomitant]
     Active Substance: WARFARIN SODIUM
  8. LEVOTHYROXINE. [Concomitant]
     Active Substance: LEVOTHYROXINE
  9. PSYLLIUM                           /01328801/ [Concomitant]
     Active Substance: PLANTAGO SEED
  10. AMBRISENTAN [Suspect]
     Active Substance: AMBRISENTAN
     Indication: PULMONARY ARTERIAL HYPERTENSION
     Dosage: 10 MG, QD
     Route: 065
  11. VELETRI [Concomitant]
     Active Substance: EPOPROSTENOL
  12. MAGNESIUM [Concomitant]
     Active Substance: MAGNESIUM
  13. PREDNISONE. [Concomitant]
     Active Substance: PREDNISONE
  14. DOCUSATE [Concomitant]
     Active Substance: DOCUSATE
  15. ZOLPIDEM [Concomitant]
     Active Substance: ZOLPIDEM\ZOLPIDEM TARTRATE
  16. SODIUM CHLORIDE. [Concomitant]
     Active Substance: SODIUM CHLORIDE
  17. AMBRISENTAN [Suspect]
     Active Substance: AMBRISENTAN
     Indication: DEEP VEIN THROMBOSIS
  18. POTASSIUM                          /00031402/ [Concomitant]
     Active Substance: POTASSIUM
  19. METRONIDAZOLE. [Concomitant]
     Active Substance: METRONIDAZOLE
  20. AMBRISENTAN [Suspect]
     Active Substance: AMBRISENTAN
     Indication: PULMONARY EMBOLISM
  21. REMODULIN [Concomitant]
     Active Substance: TREPROSTINIL
  22. ASPIRIN                            /00002701/ [Concomitant]
     Active Substance: ASPIRIN
  23. ONDANSETRON [Concomitant]
     Active Substance: ONDANSETRON

REACTIONS (6)
  - Urinary tract infection [Unknown]
  - Clostridium difficile infection [Unknown]
  - Coccidioidomycosis [Unknown]
  - Hyperhidrosis [Unknown]
  - Pyrexia [Unknown]
  - Malaise [Unknown]
